FAERS Safety Report 5991083-6 (Version None)
Quarter: 2008Q4

REPORT INFORMATION
  Report Type: 
  Country: None (occurrence: None)
  Receive Date: 20081211
  Receipt Date: 20080423
  Transmission Date: 20090506
  Serious: No
  Sender: FDA-Public Use
  Company Number: US-AMGEN-KDL276084

PATIENT
  Sex: Female

DRUGS (3)
  1. ENBREL [Suspect]
     Indication: PSORIATIC ARTHROPATHY
     Route: 058
     Dates: start: 20080220
  2. METHOTREXATE [Concomitant]
     Dates: start: 20080101
  3. COUMADIN [Concomitant]

REACTIONS (7)
  - BLISTER [None]
  - BLOOD DISORDER [None]
  - BLOOD PRESSURE INCREASED [None]
  - ERYTHEMA [None]
  - INITIAL INSOMNIA [None]
  - THERMAL BURN [None]
  - WOUND SECRETION [None]
